FAERS Safety Report 8849668 (Version 2)
Quarter: 2012Q4

REPORT INFORMATION
  Report Type: 
  Country: US (occurrence: US)
  Receive Date: 20121019
  Receipt Date: 20121122
  Transmission Date: 20130627
  Serious: No
  Sender: FDA-Public Use
  Company Number: US-PFIZER INC-2012258057

PATIENT
  Age: 63 Year
  Sex: Male
  Weight: 91 kg

DRUGS (3)
  1. INLYTA [Suspect]
     Indication: METASTATIC RENAL CELL CARCINOMA
     Dosage: 5 mg, 2x/day
     Route: 048
  2. LEVOTHYROXINE [Concomitant]
     Dosage: UNK
  3. INSULIN [Concomitant]
     Indication: DIABETES
     Dosage: UNK

REACTIONS (2)
  - Disease progression [Unknown]
  - Metastatic renal cell carcinoma [Unknown]
